FAERS Safety Report 25889949 (Version 1)
Quarter: 2025Q4

REPORT INFORMATION
  Report Type: Spontaneous
  Country: EU (occurrence: EU)
  Receive Date: 20251007
  Receipt Date: 20251007
  Transmission Date: 20260117
  Serious: Yes (Other)
  Sender: TEVA
  Company Number: EU-EMB-M202406731-1

PATIENT
  Age: 32 Year
  Sex: Female
  Weight: 90 kg

DRUGS (6)
  1. QUETIAPINE [Suspect]
     Active Substance: QUETIAPINE
     Indication: Sleep disorder
     Dosage: GW 12 UNTIL DELIVERY
     Route: 048
     Dates: start: 202409, end: 202502
  2. ESCITALOPRAM [Suspect]
     Active Substance: ESCITALOPRAM OXALATE
     Indication: Panic attack
     Dosage: DIFFERING INFORMATION ABOUT THE DAILY DOSAGE: UNTIL GW 7 10 MG EVERY 2 DAYS, AFTERWARDS PROBABLY ...
     Route: 048
     Dates: start: 202408, end: 202502
  3. ESCITALOPRAM [Suspect]
     Active Substance: ESCITALOPRAM OXALATE
     Indication: Panic attack
     Dosage: DIFFERING INFORMATION ABOUT THE DAILY DOSAGE: UNTIL GW 7 10 MG EVERY 2 DAYS, AFTERWARDS PROBABLY ...
     Route: 048
     Dates: start: 202406, end: 202408
  4. FOLIC ACID [Concomitant]
     Active Substance: FOLIC ACID
     Indication: Prophylaxis of neural tube defect
     Route: 048
     Dates: start: 202406, end: 202502
  5. PERTUSSIS VACCINE [Concomitant]
     Active Substance: PERTUSSIS VACCINE
     Indication: Immunisation
     Dosage: UNKNOWN TRIMESTER
     Route: 030
  6. PIPAMPERONE HYDROCHLORIDE [Suspect]
     Active Substance: PIPAMPERONE HYDROCHLORIDE
     Indication: Sleep disorder
     Dosage: UNTIL GW 12
     Route: 048
     Dates: start: 202406, end: 202409

REACTIONS (2)
  - Gestational diabetes [Recovered/Resolved]
  - Exposure during pregnancy [Unknown]

NARRATIVE: CASE EVENT DATE: 20240901
